FAERS Safety Report 5626072-4 (Version None)
Quarter: 2008Q1

REPORT INFORMATION
  Report Type: 
  Country: None (occurrence: None)
  Receive Date: 20080213
  Receipt Date: 20080213
  Transmission Date: 20080703
  Serious: Yes (Other)
  Sender: FDA-Public Use
  Company Number: None

PATIENT
  Age: 26 Year
  Sex: Female
  Weight: 97.5234 kg

DRUGS (1)
  1. PRILOSEC [Suspect]
     Indication: HERNIA
     Dosage: 40MG  ONCE A DAY  PO
     Route: 048
     Dates: start: 20060101, end: 20080208

REACTIONS (5)
  - COUGH [None]
  - MALAISE [None]
  - PRURITUS [None]
  - SNEEZING [None]
  - SPUTUM DISCOLOURED [None]
